FAERS Safety Report 5421216-1 (Version None)
Quarter: 2007Q3

REPORT INFORMATION
  Report Type: 
  Country: None (occurrence: None)
  Receive Date: 20070821
  Receipt Date: 20070817
  Transmission Date: 20080115
  Serious: Yes (Other)
  Sender: FDA-Public Use
  Company Number: US-ASTRAZENECA-2007UW19832

PATIENT
  Age: 66 Year
  Sex: Male
  Weight: 72.6 kg

DRUGS (9)
  1. ZESTRIL [Suspect]
     Route: 048
  2. ZESTRIL [Suspect]
     Route: 048
  3. ZESTRIL [Suspect]
     Dosage: 20 MG AM, 10 MG PM
     Route: 048
     Dates: start: 20070501
  4. HUMALOG [Concomitant]
  5. LANTUS [Concomitant]
  6. LOVASTATIN [Concomitant]
  7. PRILOSEC [Concomitant]
  8. ENTERIC ASA [Concomitant]
  9. MV [Concomitant]

REACTIONS (1)
  - BLOOD GLUCOSE ABNORMAL [None]
